FAERS Safety Report 9799371 (Version 1)
Quarter: 2014Q1

REPORT INFORMATION
  Report Type: Spontaneous
  Country: US (occurrence: US)
  Receive Date: 20140106
  Receipt Date: 20140106
  Transmission Date: 20141002
  Serious: Yes (Other)
  Sender: FDA-Public Use
  Company Number: US-BIOMARINAP-US-2013-102169

PATIENT
  Sex: Female
  Weight: 11.34 kg

DRUGS (1)
  1. KUVAN [Suspect]
     Indication: PHENYLKETONURIA
     Dosage: 100 MG, QD
     Route: 048
     Dates: start: 20131221

REACTIONS (2)
  - Convulsion [Unknown]
  - Epistaxis [Unknown]
